FAERS Safety Report 4912595-X (Version None)
Quarter: 2006Q1

REPORT INFORMATION
  Report Type: 
  Country: None (occurrence: None)
  Receive Date: 20060215
  Receipt Date: 20060204
  Transmission Date: 20060701
  Serious: Yes (Hospitalization)
  Sender: FDA-Public Use
  Company Number: US-GLAXOSMITHKLINE-B0409133A

PATIENT
  Age: 41 Year
  Sex: Male
  Weight: 46.4 kg

DRUGS (4)
  1. LAMICTAL [Suspect]
     Indication: EPILEPSY
     Route: 048
     Dates: start: 20060106
  2. LAMICTAL [Concomitant]
     Dosage: 300MG PER DAY
  3. DEPAKOTE [Concomitant]
     Indication: CONVULSION
     Dosage: 1525MG PER DAY
  4. RANITIDINE [Concomitant]
     Indication: REGURGITATION OF FOOD
     Dosage: 300MG PER DAY

REACTIONS (3)
  - CONVULSION [None]
  - GRAND MAL CONVULSION [None]
  - HAEMOPTYSIS [None]
